FAERS Safety Report 19073349 (Version 1)
Quarter: 2021Q1

REPORT INFORMATION
  Report Type: Other
  Country: US (occurrence: US)
  Receive Date: 20210330
  Receipt Date: 20210330
  Transmission Date: 20210420
  Serious: Yes (Other)
  Sender: FDA-Public Use
  Company Number: US-ROCHE-2793604

PATIENT
  Sex: Male

DRUGS (20)
  1. ERIVEDGE [Suspect]
     Active Substance: VISMODEGIB
     Indication: SEXUAL DYSFUNCTION
  2. ERIVEDGE [Suspect]
     Active Substance: VISMODEGIB
     Indication: RENAL CYST
  3. ERIVEDGE [Suspect]
     Active Substance: VISMODEGIB
     Indication: MYALGIA
  4. ERIVEDGE [Suspect]
     Active Substance: VISMODEGIB
     Indication: GOUTY ARTHRITIS
  5. ERIVEDGE [Suspect]
     Active Substance: VISMODEGIB
     Indication: HYPERTRIGLYCERIDAEMIA
  6. ERIVEDGE [Suspect]
     Active Substance: VISMODEGIB
     Indication: CONSTIPATION
  7. ERIVEDGE [Suspect]
     Active Substance: VISMODEGIB
     Indication: ARTHRALGIA
  8. ERIVEDGE [Suspect]
     Active Substance: VISMODEGIB
     Indication: OBESITY
  9. ERIVEDGE [Suspect]
     Active Substance: VISMODEGIB
     Indication: PLANTAR FASCIAL FIBROMATOSIS
  10. ERIVEDGE [Suspect]
     Active Substance: VISMODEGIB
     Indication: TYPE 2 DIABETES MELLITUS
  11. ERIVEDGE [Suspect]
     Active Substance: VISMODEGIB
     Indication: HYPERCHOLESTEROLAEMIA
  12. ERIVEDGE [Suspect]
     Active Substance: VISMODEGIB
     Indication: HEPATIC STEATOSIS
  13. ERIVEDGE [Suspect]
     Active Substance: VISMODEGIB
     Indication: HYPERTENSION
  14. ERIVEDGE [Suspect]
     Active Substance: VISMODEGIB
     Indication: DIABETES INSIPIDUS
  15. ERIVEDGE [Suspect]
     Active Substance: VISMODEGIB
     Indication: DIVERTICULUM
  16. ERIVEDGE [Suspect]
     Active Substance: VISMODEGIB
     Indication: PROTEINURIA
  17. ERIVEDGE [Suspect]
     Active Substance: VISMODEGIB
     Indication: BASAL CELL CARCINOMA
     Dosage: TAKE 1 CAPSULE BY MOUTH EVERY DAY FOR 10 DAYS THEN THE REST OF THE MONTH OFF
     Route: 048
  18. ERIVEDGE [Suspect]
     Active Substance: VISMODEGIB
     Indication: LIPID METABOLISM DISORDER
  19. ERIVEDGE [Suspect]
     Active Substance: VISMODEGIB
     Indication: OSTEOARTHRITIS
  20. ERIVEDGE [Suspect]
     Active Substance: VISMODEGIB
     Indication: SOFT TISSUE SARCOMA

REACTIONS (1)
  - Hypoacusis [Unknown]
